FAERS Safety Report 10028978 (Version 2)
Quarter: 2014Q2

REPORT INFORMATION
  Report Type: Report from Study
  Country: BR (occurrence: BR)
  Receive Date: 20140321
  Receipt Date: 20140529
  Transmission Date: 20141212
  Serious: Yes (Hospitalization, Other)
  Sender: FDA-Public Use
  Company Number: PHHY2014BR034496

PATIENT
  Age: 62 Year
  Sex: Female
  Weight: 48 kg

DRUGS (4)
  1. TRILEPTAL [Suspect]
     Indication: CONVULSION
     Dosage: 1 DF, Q12H
     Route: 048
     Dates: start: 201308
  2. TRILEPTAL [Suspect]
     Indication: CONVULSION
     Dosage: 5 ML, Q12H
     Route: 048
  3. RISPERIDONE [Concomitant]
     Indication: BRAIN NEOPLASM
     Dosage: 2 MG, UNK
     Route: 048
     Dates: start: 201308
  4. DECADRON-PHOSPHAT [Concomitant]
     Indication: BRAIN NEOPLASM
     Dosage: 2 MG, UNK
     Route: 048
     Dates: start: 201308

REACTIONS (3)
  - Oncologic complication [Recovering/Resolving]
  - Convulsion [Recovering/Resolving]
  - Dysphagia [Recovering/Resolving]
